FAERS Safety Report 6042358-6 (Version None)
Quarter: 2009Q1

REPORT INFORMATION
  Report Type: 
  Country: None (occurrence: None)
  Receive Date: 20090116
  Receipt Date: 20090107
  Transmission Date: 20090719
  Serious: Yes (Other)
  Sender: FDA-Public Use
  Company Number: BR-PFIZER INC-2008156790

PATIENT

DRUGS (4)
  1. GABAPENTIN [Suspect]
     Indication: EPILEPSY
     Dosage: UNK
     Route: 048
     Dates: start: 20050101
  2. GABAPENTIN [Suspect]
     Dosage: UNK
     Route: 048
     Dates: start: 20030101
  3. TRILEPTAL [Concomitant]
     Dosage: UNK
     Route: 065
  4. CLOBAZAM [Concomitant]
     Dosage: UNK
     Route: 065

REACTIONS (4)
  - CALCULUS URINARY [None]
  - CONVULSION [None]
  - DRUG INEFFECTIVE [None]
  - THYROID DISORDER [None]
